FAERS Safety Report 6735516-6 (Version None)
Quarter: 2010Q2

REPORT INFORMATION
  Report Type: 
  Country: None (occurrence: None)
  Receive Date: 20100521
  Receipt Date: 20100510
  Transmission Date: 20101027
  Serious: Yes (Disabling)
  Sender: FDA-Public Use
  Company Number: ZA-WYE-H15073210

PATIENT
  Sex: Male
  Weight: 75 kg

DRUGS (5)
  1. SIROLIMUS [Suspect]
     Indication: IMMUNOSUPPRESSANT DRUG THERAPY
     Route: 048
     Dates: start: 20091222
  2. AMLOR [Concomitant]
     Indication: HYPERTENSION
     Route: 048
     Dates: start: 20070410
  3. PREDNISONE TAB [Concomitant]
     Indication: IMMUNOSUPPRESSANT DRUG THERAPY
     Route: 048
     Dates: start: 20071023
  4. BLINDED THERAPY [Suspect]
     Indication: PROTEINURIA
     Route: 048
     Dates: start: 20091123, end: 20100510
  5. CELLCEPT [Concomitant]
     Indication: IMMUNOSUPPRESSANT DRUG THERAPY
     Route: 048
     Dates: start: 20071022

REACTIONS (1)
  - COUGH [None]
